FAERS Safety Report 6172503-3 (Version None)
Quarter: 2009Q2

REPORT INFORMATION
  Report Type: 
  Country: None (occurrence: None)
  Receive Date: 20090427
  Receipt Date: 20090416
  Transmission Date: 20091009
  Serious: Yes (Other)
  Sender: FDA-Public Use
  Company Number: 250517

PATIENT
  Age: 17 Year
  Sex: Female
  Weight: 60 kg

DRUGS (1)
  1. EHANOL [Suspect]
     Indication: CHEMICAL POISONING
     Dosage: 450 ML; INTRAVENOUS; 60 ML/H; INTRAVENOUS
     Route: 042

REACTIONS (4)
  - AGITATION [None]
  - COMA [None]
  - HYPOTENSION [None]
  - OFF LABEL USE [None]
